FAERS Safety Report 24564582 (Version 2)
Quarter: 2024Q4

REPORT INFORMATION
  Report Type: Report from Study
  Country: CA (occurrence: CA)
  Receive Date: 20241030
  Receipt Date: 20241213
  Transmission Date: 20250114
  Serious: Yes (Other)
  Sender: REGENERON
  Company Number: CA-BAYER-2024A128369

PATIENT
  Sex: Female

DRUGS (3)
  1. EYLEA [Suspect]
     Active Substance: AFLIBERCEPT
     Indication: Retinal vein occlusion
     Dosage: LEFT EYE (OS) (PATIENT ON TREATMENT FOR BOTH EYES), SOLUTION FOR INJECTION, 40 MG/ML
     Dates: start: 202402, end: 202402
  2. EYLEA [Suspect]
     Active Substance: AFLIBERCEPT
     Indication: Age-related macular degeneration
     Dosage: LEFT EYE, SOLUTION FOR INJECTION, 40 MG/ML
     Dates: start: 20240320, end: 20240320
  3. EYLEA [Suspect]
     Active Substance: AFLIBERCEPT
     Dosage: RIGHT EYE (PATIENT ON TREATMENT FOR BOTH EYES), SOLUTION FOR INJECTION, 40 MG/ML
     Dates: start: 20230814

REACTIONS (5)
  - Blindness unilateral [Not Recovered/Not Resolved]
  - Retinal ischaemia [Unknown]
  - Macular degeneration [Not Recovered/Not Resolved]
  - Retinal artery occlusion [Unknown]
  - Retinal vasculitis [Unknown]

NARRATIVE: CASE EVENT DATE: 20240401
